FAERS Safety Report 11823110 (Version 3)
Quarter: 2016Q1

REPORT INFORMATION
  Report Type: Report from Study
  Country: US (occurrence: US)
  Receive Date: 20151210
  Receipt Date: 20160229
  Transmission Date: 20160525
  Serious: Yes (Hospitalization, Other)
  Sender: FDA-Public Use
  Company Number: US-GILEAD-2015-0186989

PATIENT
  Age: 55 Year
  Sex: Female

DRUGS (1)
  1. AMBRISENTAN [Suspect]
     Active Substance: AMBRISENTAN
     Indication: PULMONARY HYPERTENSION
     Dosage: 5 MG, QD
     Route: 065
     Dates: start: 20151124, end: 20160201

REACTIONS (7)
  - Cardiac flutter [Unknown]
  - Cerebral haemorrhage [Unknown]
  - Oxygen saturation decreased [Unknown]
  - Fall [Unknown]
  - Cardiac failure congestive [Unknown]
  - Carotid artery occlusion [Unknown]
  - Mechanical ventilation [Unknown]

NARRATIVE: CASE EVENT DATE: 20151201
